FAERS Safety Report 5423354-6 (Version None)
Quarter: 2007Q3

REPORT INFORMATION
  Report Type: 
  Country: None (occurrence: None)
  Receive Date: 20070730
  Receipt Date: 20070102
  Transmission Date: 20080115
  Serious: Yes (Hospitalization, Other)
  Sender: FDA-Public Use
  Company Number: 200615871BWH

PATIENT
  Age: 54 Year
  Sex: Female
  Weight: 68.0396 kg

DRUGS (7)
  1. AVELOX [Suspect]
     Indication: BRONCHITIS
     Dosage: ONCE, ORAL
     Route: 048
     Dates: start: 20061003
  2. DIOVAN HCT [Concomitant]
  3. NORVASC [Concomitant]
  4. TOPROL-XL [Concomitant]
  5. CRESTOR [Concomitant]
  6. NEURONTIN [Concomitant]
  7. TEGRETOL [Concomitant]

REACTIONS (16)
  - ABDOMINAL PAIN UPPER [None]
  - ANAPHYLACTIC REACTION [None]
  - ANXIETY [None]
  - BURNING SENSATION [None]
  - DIARRHOEA [None]
  - DYSPHONIA [None]
  - DYSPNOEA [None]
  - ERYTHEMA [None]
  - HEART RATE INCREASED [None]
  - HYPOAESTHESIA [None]
  - HYPOAESTHESIA ORAL [None]
  - PAIN [None]
  - PHARYNGEAL OEDEMA [None]
  - PRURITUS [None]
  - SPEECH DISORDER [None]
  - URTICARIA [None]
